FAERS Safety Report 5702748-5 (Version None)
Quarter: 2008Q2

REPORT INFORMATION
  Report Type: 
  Country: None (occurrence: None)
  Receive Date: 20080411
  Receipt Date: 20080331
  Transmission Date: 20081010
  Serious: Yes (Hospitalization)
  Sender: FDA-Public Use
  Company Number: B0514954A

PATIENT
  Age: 80 Year
  Sex: Male
  Weight: 82 kg

DRUGS (9)
  1. SERETIDE [Suspect]
     Indication: CHRONIC OBSTRUCTIVE PULMONARY DISEASE
     Route: 055
     Dates: end: 20071101
  2. FLECAINIDE ACETATE [Suspect]
     Route: 048
     Dates: start: 20070101, end: 20080123
  3. VASTEN [Suspect]
     Dosage: 10MG PER DAY
     Route: 048
     Dates: end: 20080123
  4. COVERSYL [Concomitant]
     Route: 048
  5. LASILIX [Concomitant]
     Route: 048
     Dates: end: 20080123
  6. LOXEN [Concomitant]
     Route: 048
     Dates: end: 20080123
  7. STAGID [Concomitant]
     Route: 048
     Dates: end: 20080123
  8. OMEPRAZOLE [Concomitant]
     Indication: DRUG USE FOR UNKNOWN INDICATION
     Route: 048
     Dates: end: 20080123
  9. PREVISCAN [Concomitant]
     Route: 048

REACTIONS (5)
  - ATRIAL FLUTTER [None]
  - DYSPNOEA [None]
  - LUNG DISORDER [None]
  - RESPIRATORY FAILURE [None]
  - TREATMENT NONCOMPLIANCE [None]
